FAERS Safety Report 11072448 (Version 1)
Quarter: 2015Q2

REPORT INFORMATION
  Report Type: Spontaneous
  Country: US (occurrence: US)
  Receive Date: 20150428
  Receipt Date: 20150428
  Transmission Date: 20150821
  Serious: Yes (Other)
  Sender: FDA-Public Use
  Company Number: US-ASTRAZENECA-2015SE36873

PATIENT
  Age: 31532 Day
  Sex: Male

DRUGS (3)
  1. CASODEX [Suspect]
     Active Substance: BICALUTAMIDE
     Route: 048
     Dates: start: 201306, end: 201311
  2. XTANDI [Suspect]
     Active Substance: ENZALUTAMIDE
     Indication: PROSTATE CANCER
     Route: 048
     Dates: end: 20150113
  3. XTANDI [Suspect]
     Active Substance: ENZALUTAMIDE
     Indication: PROSTATE CANCER
     Route: 048
     Dates: start: 201410

REACTIONS (10)
  - Decreased appetite [Unknown]
  - Hypersomnia [Unknown]
  - Incorrect dose administered [Unknown]
  - Fatigue [Unknown]
  - Arthralgia [Unknown]
  - Metastases to bone [Not Recovered/Not Resolved]
  - Back pain [Unknown]
  - Night sweats [Unknown]
  - Dysphagia [Unknown]
  - Salivary gland neoplasm [Not Recovered/Not Resolved]

NARRATIVE: CASE EVENT DATE: 20140926
